FAERS Safety Report 9345092 (Version 2)
Quarter: 2013Q3

REPORT INFORMATION
  Report Type: Spontaneous
  Country: US (occurrence: US)
  Receive Date: 20130612
  Receipt Date: 20130802
  Transmission Date: 20140515
  Serious: Yes (Other)
  Sender: FDA-Public Use
  Company Number: CHPA2013US009682

PATIENT
  Age: 76 Year
  Sex: Male

DRUGS (12)
  1. VOLTAREN GEL [Suspect]
     Dosage: 4 G, UNK
     Route: 061
     Dates: start: 20130606, end: 20130607
  2. SOTALOL [Concomitant]
     Indication: ATRIAL FIBRILLATION
     Dosage: 40 MG, BID
  3. CLONIDINE [Concomitant]
     Indication: HYPERTENSION
     Dosage: 0.1 MG, QD
     Route: 048
  4. KETOPROFEN [Concomitant]
  5. MULTAQ [Concomitant]
     Dosage: 400 MG, BID
     Route: 048
  6. LISINOPRIL [Concomitant]
     Dosage: 20 MG, BID
     Route: 048
  7. VITAMIN D3 [Concomitant]
     Dosage: 1000 IU, BID
     Route: 048
  8. VITAMIN B12 [Concomitant]
     Dosage: 1 DF, BID
     Route: 048
  9. SLO-NIACIN [Concomitant]
     Dosage: 1000 MG, BID
     Route: 048
  10. MULTIVITAMINS, PLAIN [Concomitant]
     Dosage: 1 DF, QD
     Route: 048
  11. FISH OIL [Concomitant]
     Dosage: 3 DF, UP TO TWICE A DAY
     Route: 048
  12. KETOPROFEN [Concomitant]
     Dosage: UNK, TID PRN
     Route: 061

REACTIONS (4)
  - Atrial fibrillation [Recovered/Resolved]
  - Concomitant disease aggravated [Recovered/Resolved]
  - Off label use [Unknown]
  - Drug administered at inappropriate site [Unknown]
